FAERS Safety Report 5770297-4 (Version None)
Quarter: 2008Q2

REPORT INFORMATION
  Report Type: 
  Country: None (occurrence: None)
  Receive Date: 20080613
  Receipt Date: 20080424
  Transmission Date: 20081010
  Serious: No
  Sender: FDA-Public Use
  Company Number: US-ABBOTT-08P-163-0448948-00

PATIENT
  Sex: Female
  Weight: 63.56 kg

DRUGS (2)
  1. HUMIRA [Suspect]
     Indication: COLITIS ULCERATIVE
     Route: 058
     Dates: start: 20080121
  2. LEVOTHYROXINE SODIUM [Concomitant]
     Indication: DRUG USE FOR UNKNOWN INDICATION

REACTIONS (2)
  - ARTHRALGIA [None]
  - MUSCULOSKELETAL STIFFNESS [None]
